FAERS Safety Report 16749157 (Version 6)
Quarter: 2019Q3

REPORT INFORMATION
  Report Type: Spontaneous
  Country: US (occurrence: US)
  Receive Date: 20190828
  Receipt Date: 20190912
  Transmission Date: 20191005
  Serious: Yes (Hospitalization, Other)
  Sender: FDA-Public Use
  Company Number: US-HORIZON-KRY-0604-2019

PATIENT
  Age: 37 Year
  Sex: Male

DRUGS (2)
  1. KRYSTEXXA [Suspect]
     Active Substance: PEGLOTICASE
     Indication: PRODUCT USED FOR UNKNOWN INDICATION
     Route: 042
     Dates: start: 20190820
  2. METHOTREXATE. [Concomitant]
     Active Substance: METHOTREXATE

REACTIONS (18)
  - Respiration abnormal [Recovered/Resolved]
  - Anxiety [Recovered/Resolved]
  - Vertigo [Unknown]
  - Chest discomfort [Not Recovered/Not Resolved]
  - Viral infection [Unknown]
  - Dyspnoea [Not Recovered/Not Resolved]
  - Feeling abnormal [Not Recovered/Not Resolved]
  - Hypertension [Unknown]
  - Headache [Not Recovered/Not Resolved]
  - Dizziness [Not Recovered/Not Resolved]
  - Insurance issue [Unknown]
  - Infusion related reaction [Recovered/Resolved]
  - Feeling abnormal [Unknown]
  - Chest pain [Unknown]
  - Dysphonia [Unknown]
  - Angina pectoris [Unknown]
  - Facial paralysis [Unknown]
  - Palpitations [Not Recovered/Not Resolved]

NARRATIVE: CASE EVENT DATE: 20190820
